FAERS Safety Report 6246019-X (Version None)
Quarter: 2009Q2

REPORT INFORMATION
  Report Type: 
  Country: None (occurrence: None)
  Receive Date: 20090626
  Receipt Date: 20081106
  Transmission Date: 20091009
  Serious: No
  Sender: FDA-Public Use
  Company Number: A0755625A

PATIENT
  Sex: Male

DRUGS (2)
  1. IMITREX [Suspect]
     Indication: MIGRAINE
     Route: 048
  2. IMITREX [Suspect]
     Route: 058

REACTIONS (2)
  - DRUG INEFFECTIVE [None]
  - PRODUCT QUALITY ISSUE [None]
